FAERS Safety Report 15821994 (Version 1)
Quarter: 2019Q1

REPORT INFORMATION
  Report Type: Spontaneous
  Country: US (occurrence: US)
  Receive Date: 20190114
  Receipt Date: 20190114
  Transmission Date: 20190417
  Serious: Yes (Other)
  Sender: FDA-Public Use
  Company Number: None

PATIENT
  Age: 34 Year
  Sex: Male

DRUGS (7)
  1. FLONASE 1 SPRAY EACH NOSTRIL DAILY [Concomitant]
  2. BUPROPION ER 300 MG [Concomitant]
     Active Substance: BUPROPION
  3. TECFIDERA [Suspect]
     Active Substance: DIMETHYL FUMARATE
     Indication: MULTIPLE SCLEROSIS
     Route: 048
     Dates: start: 20181004, end: 20181105
  4. CETIRIZINE 10 MG DAILY [Concomitant]
  5. MULTIVITAMIN DAILY [Concomitant]
  6. MEDROL DOSE PAK [Concomitant]
     Dates: start: 20181004, end: 20181031
  7. FISH OIL 2000 MG BID [Concomitant]

REACTIONS (4)
  - Headache [None]
  - Nausea [None]
  - Movement disorder [None]
  - Fatigue [None]

NARRATIVE: CASE EVENT DATE: 20181105
